FAERS Safety Report 15650368 (Version 2)
Quarter: 2018Q4

REPORT INFORMATION
  Report Type: Spontaneous
  Country: DE (occurrence: DE)
  Receive Date: 20181123
  Receipt Date: 20181206
  Transmission Date: 20190205
  Serious: No
  Sender: FDA-Public Use
  Company Number: DE-BRISTOL-MYERS SQUIBB COMPANY-BMS-2017-039528

PATIENT
  Age: 68 Year
  Sex: Male
  Weight: 82 kg

DRUGS (6)
  1. ELIQUIS [Suspect]
     Active Substance: APIXABAN
     Indication: INTRACRANIAL VENOUS SINUS THROMBOSIS
     Dosage: 2.5 MG, BID
     Route: 048
     Dates: start: 20170914
  2. PROCAINE [Concomitant]
     Active Substance: PROCAINE
     Indication: PRODUCT USED FOR UNKNOWN INDICATION
     Dosage: UNK
     Route: 065
  3. ELIQUIS [Suspect]
     Active Substance: APIXABAN
     Indication: ANTIPHOSPHOLIPID SYNDROME
     Dosage: 5 MG, BID
     Route: 048
     Dates: start: 20170309, end: 20170913
  4. SIMVASTATIN. [Concomitant]
     Active Substance: SIMVASTATIN
     Indication: PRODUCT USED FOR UNKNOWN INDICATION
     Dosage: 10 MG, QD
     Route: 065
  5. KATADOLON                          /00890102/ [Suspect]
     Active Substance: FLUPIRTINE
     Indication: PAIN
     Dosage: 400 MG, UNK
     Route: 065
     Dates: start: 20170425, end: 201705
  6. TRIAMCINOLONE [Concomitant]
     Active Substance: TRIAMCINOLONE
     Indication: PRODUCT USED FOR UNKNOWN INDICATION
     Dosage: 40 MG, UNK
     Route: 065

REACTIONS (11)
  - Thrombocytosis [Unknown]
  - Blood bilirubin increased [Unknown]
  - Blood potassium increased [Unknown]
  - Blood calcium increased [Unknown]
  - White blood cell count increased [Unknown]
  - Monocyte count increased [Unknown]
  - Abdominal discomfort [Not Recovered/Not Resolved]
  - Glomerular filtration rate decreased [Unknown]
  - Basophil count increased [Unknown]
  - Product use in unapproved indication [Unknown]
  - Neutrophil count increased [Unknown]

NARRATIVE: CASE EVENT DATE: 201703
